FAERS Safety Report 7099038-8 (Version None)
Quarter: 2010Q4

REPORT INFORMATION
  Report Type: 
  Country: None (occurrence: None)
  Receive Date: 20101112
  Receipt Date: 20101110
  Transmission Date: 20110411
  Serious: Yes (Other)
  Sender: FDA-Public Use
  Company Number: A0868833A

PATIENT
  Sex: Female
  Weight: 76.8 kg

DRUGS (1)
  1. ALLI [Suspect]
     Route: 048
     Dates: start: 20080101, end: 20100401

REACTIONS (11)
  - ABDOMINAL DISCOMFORT [None]
  - ABDOMINAL DISTENSION [None]
  - COLONOSCOPY [None]
  - CONSTIPATION [None]
  - FLATULENCE [None]
  - GASTROINTESTINAL DISORDER [None]
  - INTESTINAL FUNCTIONAL DISORDER [None]
  - INTESTINAL POLYP [None]
  - IRRITABLE BOWEL SYNDROME [None]
  - MUCOUS STOOLS [None]
  - RECTAL DISCHARGE [None]
